FAERS Safety Report 11783084 (Version 3)
Quarter: 2019Q3

REPORT INFORMATION
  Report Type: Spontaneous
  Country: DE (occurrence: DE)
  Receive Date: 20151127
  Receipt Date: 20190911
  Transmission Date: 20191004
  Serious: Yes (Hospitalization, Other)
  Sender: FDA-Public Use
  Company Number: GXKR2015DE005177

PATIENT
  Age: 11 Week
  Sex: Male

DRUGS (2)
  1. KEPPRA [Suspect]
     Active Substance: LEVETIRACETAM
     Indication: FOETAL EXPOSURE DURING PREGNANCY
     Dosage: UNK
     Route: 063
  2. LAMOTRIGIN HEXAL [Suspect]
     Active Substance: LAMOTRIGINE
     Indication: FOETAL EXPOSURE DURING PREGNANCY
     Dosage: UNK
     Route: 063

REACTIONS (6)
  - Loss of consciousness [Recovered/Resolved]
  - Maternal exposure during pregnancy [Unknown]
  - Exposure via breast milk [Unknown]
  - Hypothermia [Unknown]
  - Syncope [Unknown]
  - Lethargy [Unknown]
